FAERS Safety Report 11116439 (Version 1)
Quarter: 2015Q2

REPORT INFORMATION
  Report Type: Spontaneous
  Country: US (occurrence: None)
  Receive Date: 20150514
  Receipt Date: 20150514
  Transmission Date: 20150821
  Serious: Yes (Hospitalization)
  Sender: FDA-Public Use
  Company Number: None

PATIENT
  Age: 69 Year
  Sex: Female
  Weight: 90.72 kg

DRUGS (3)
  1. CENTRUM [Concomitant]
     Active Substance: VITAMINS
  2. DIOVAN HCT [Concomitant]
     Active Substance: HYDROCHLOROTHIAZIDE\VALSARTAN
  3. VALSARTAN AND HYDROCHLOROTHIAZIDE [Suspect]
     Active Substance: HYDROCHLOROTHIAZIDE\VALSARTAN
     Indication: HYPERTENSION
     Dosage: 320-25 MG 1 PILL ONCE/DAY MOUTH
     Route: 048
     Dates: end: 201503

REACTIONS (9)
  - Skin exfoliation [None]
  - Peripheral swelling [None]
  - Hypoaesthesia [None]
  - Erythema [None]
  - Rash [None]
  - Dysphonia [None]
  - Paraesthesia [None]
  - Arthropathy [None]
  - Swelling [None]
